FAERS Safety Report 6577578-5 (Version None)
Quarter: 2010Q1

REPORT INFORMATION
  Report Type: 
  Country: None (occurrence: None)
  Receive Date: 20100211
  Receipt Date: 20100111
  Transmission Date: 20100710
  Serious: No
  Sender: FDA-Public Use
  Company Number: US-BAYER-201010721BCC

PATIENT
  Age: 58 Year
  Sex: Male
  Weight: 82 kg

DRUGS (2)
  1. ALEVE (CAPLET) [Suspect]
     Indication: TOOTHACHE
     Route: 048
  2. UNKNOWN PENICILLIN [Concomitant]
     Route: 065

REACTIONS (1)
  - DRUG SCREEN POSITIVE [None]
